FAERS Safety Report 5671424-X (Version None)
Quarter: 2008Q1

REPORT INFORMATION
  Report Type: 
  Country: None (occurrence: None)
  Receive Date: 20080313
  Receipt Date: 20080229
  Transmission Date: 20080703
  Serious: Yes (Hospitalization)
  Sender: FDA-Public Use
  Company Number: 000227

PATIENT
  Age: 87 Year
  Sex: Female
  Weight: 30 kg

DRUGS (3)
  1. PLETAL [Suspect]
     Indication: CEREBRAL INFARCTION
     Dosage: 50 MG, BID, ORAL
     Route: 048
     Dates: start: 20071204, end: 20071218
  2. SYMMETREL (AMANTADIEN HYDRCHLORIDE) [Suspect]
     Indication: CEREBRAL INFARCTION
     Dosage: 100 MG, BID, ORAL
     Route: 048
     Dates: start: 20070327, end: 20071218
  3. SERMION (NICERGILINE) TABLET [Concomitant]

REACTIONS (5)
  - BLOOD PRESSURE DECREASED [None]
  - DELIRIUM [None]
  - RESTLESSNESS [None]
  - SUPRAVENTRICULAR EXTRASYSTOLES [None]
  - TACHYCARDIA [None]
